FAERS Safety Report 5599669-8 (Version None)
Quarter: 2008Q1

REPORT INFORMATION
  Report Type: 
  Country: None (occurrence: None)
  Receive Date: 20080123
  Receipt Date: 20080111
  Transmission Date: 20080703
  Serious: Yes (Hospitalization)
  Sender: FDA-Public Use
  Company Number: JP-BRISTOL-MYERS SQUIBB COMPANY-14036495

PATIENT
  Age: 21 Year
  Sex: Male

DRUGS (5)
  1. ARIPIPRAZOLE [Suspect]
     Indication: SCHIZOPHRENIA
     Dosage: 24 MG/DAY(20-JUL-2007-NOT CONTINUING);15 MG/DAY(UNKNOWN-04-JAN-2007).6MG/DAY, PO,(04JAN08-UNKNOWN).
     Route: 048
     Dates: start: 20070720, end: 20080104
  2. ETIZOLAM [Concomitant]
     Route: 048
  3. LORAZEPAM [Concomitant]
     Dosage: 16-NOV-2007 TO 19-NOV-2007, DURATION: 4 WEEKS 6 DAYS, DOSE: 1.5 MG, ROUTE: ORAL.
     Route: 048
     Dates: start: 20071220, end: 20080104
  4. VALPROATE SODIUM [Concomitant]
     Dosage: 16NOV07-06DEC07,3WEEKS,400MG,ORAL.28DEC07-03JAN08,1WEEK,400MG,ORAL.04JAN08-CONTINUNING 600MG, ORAL.
     Route: 048
     Dates: start: 20071207, end: 20071227
  5. OLANZAPINE [Concomitant]
     Route: 048
     Dates: start: 20080104

REACTIONS (5)
  - AGITATION [None]
  - DRUG INEFFECTIVE [None]
  - EMOTIONAL DISORDER [None]
  - HALLUCINATION, AUDITORY [None]
  - RESTLESSNESS [None]
